FAERS Safety Report 6469486-5 (Version None)
Quarter: 2009Q4

REPORT INFORMATION
  Report Type: 
  Country: None (occurrence: None)
  Receive Date: 20091203
  Receipt Date: 20091126
  Transmission Date: 20100525
  Serious: Yes (Death, Hospitalization)
  Sender: FDA-Public Use
  Company Number: ES-SANOFI-AVENTIS-200921069GDDC

PATIENT
  Age: 78 Year
  Sex: Female
  Weight: 50 kg

DRUGS (4)
  1. DOCETAXEL [Suspect]
     Dosage: DOSE UNIT: 58.4 MG
     Route: 042
     Dates: start: 20090915, end: 20090915
  2. OXALIPLATIN [Suspect]
     Dosage: DOSE UNIT: 116 MG
     Route: 042
     Dates: start: 20090915, end: 20090915
  3. CAPECITABINE [Suspect]
     Dosage: DOSE UNIT: 1000 MG
     Route: 048
     Dates: start: 20090915, end: 20090922
  4. ENOXAPARIN SODIUM [Concomitant]
     Dosage: DOSE UNIT: 40 MG
     Route: 058

REACTIONS (1)
  - RENAL FAILURE [None]
